FAERS Safety Report 24451143 (Version 1)
Quarter: 2024Q4

REPORT INFORMATION
  Report Type: Report from Study
  Country: IE (occurrence: IE)
  Receive Date: 20241017
  Receipt Date: 20241017
  Transmission Date: 20250114
  Serious: Yes (Hospitalization)
  Sender: TEVA
  Company Number: IE-TEVA-VS-3252807

PATIENT
  Age: 47 Year
  Sex: Female

DRUGS (2)
  1. COPAXONE [Suspect]
     Active Substance: GLATIRAMER ACETATE
     Indication: Multiple sclerosis
     Dosage: TIME INTERVAL: 0.33333333 WEEKS
     Route: 065
     Dates: start: 20180509, end: 202405
  2. Serc [Concomitant]
     Indication: Product used for unknown indication
     Route: 065

REACTIONS (5)
  - Heart rate increased [Unknown]
  - Lung disorder [Unknown]
  - Dyspnoea [Unknown]
  - Haemorrhage [Unknown]
  - Headache [Unknown]

NARRATIVE: CASE EVENT DATE: 20240401
